FAERS Safety Report 7214874-2 (Version None)
Quarter: 2011Q1

REPORT INFORMATION
  Report Type: 
  Country: None (occurrence: None)
  Receive Date: 20110107
  Receipt Date: 20100419
  Transmission Date: 20110831
  Serious: No
  Sender: FDA-Public Use
  Company Number: A0855679A

PATIENT
  Age: 64 Year
  Sex: Female

DRUGS (6)
  1. METOPROLOL [Concomitant]
  2. LOVAZA [Suspect]
     Dosage: 4G PER DAY
     Route: 048
     Dates: start: 20070601
  3. ZETIA [Concomitant]
  4. ASPIRIN [Concomitant]
  5. NEXIUM [Concomitant]
  6. PROBIOTICS [Concomitant]
     Dates: start: 20090701

REACTIONS (3)
  - FLATULENCE [None]
  - ERUCTATION [None]
  - BACK PAIN [None]
